FAERS Safety Report 25776303 (Version 1)
Quarter: 2025Q3

REPORT INFORMATION
  Report Type: Spontaneous
  Country: US (occurrence: US)
  Receive Date: 20250909
  Receipt Date: 20250909
  Transmission Date: 20251021
  Serious: No
  Sender: DOMPE FARMACEUTICI
  Company Number: US-FARMAPROD-202408-2989

PATIENT
  Age: 43 Year
  Sex: Male

DRUGS (21)
  1. OXERVATE [Suspect]
     Active Substance: CENEGERMIN-BKBJ
     Indication: Neurotrophic keratopathy
     Route: 047
     Dates: start: 20240812
  2. OXERVATE [Suspect]
     Active Substance: CENEGERMIN-BKBJ
  3. SYSTANE ULTRA [Concomitant]
     Active Substance: POLYETHYLENE GLYCOL 400\PROPYLENE GLYCOL
  4. FINASTERIDE [Concomitant]
     Active Substance: FINASTERIDE
  5. ALBUTEROL SULFATE [Concomitant]
     Active Substance: ALBUTEROL SULFATE
  6. FIBER THERAPY (CALCIUM POLYCARBOPHIL) [Concomitant]
     Active Substance: CALCIUM POLYCARBOPHIL
  7. IRON [Concomitant]
     Active Substance: IRON
  8. VITAMIN D3 [Concomitant]
     Active Substance: CHOLECALCIFEROL
  9. COENZYME Q10 [Concomitant]
     Active Substance: DIETARY SUPPLEMENT\UBIDECARENONE
  10. VITAMINS [Concomitant]
     Active Substance: VITAMINS
  11. BIOTIN [Concomitant]
     Active Substance: BIOTIN
  12. TYLENOL [Concomitant]
     Active Substance: ACETAMINOPHEN
  13. NAPROXEN [Concomitant]
     Active Substance: NAPROXEN
  14. IBUPROFEN [Concomitant]
     Active Substance: IBUPROFEN
  15. TOBRADEX ST [Concomitant]
     Active Substance: DEXAMETHASONE\TOBRAMYCIN
  16. SYSTANE COMPLETE PF [Concomitant]
     Active Substance: PROPYLENE GLYCOL
  17. MURO 128 [Concomitant]
     Active Substance: SODIUM CHLORIDE
  18. BEPREVE [Concomitant]
     Active Substance: BEPOTASTINE BESILATE
  19. METHOCARBAMOL [Concomitant]
     Active Substance: METHOCARBAMOL
  20. ESOMEPRAZOLE MAGNESIUM [Concomitant]
     Active Substance: ESOMEPRAZOLE MAGNESIUM
  21. XYZAL [Concomitant]
     Active Substance: LEVOCETIRIZINE DIHYDROCHLORIDE

REACTIONS (5)
  - Inappropriate schedule of product administration [Unknown]
  - Ocular hyperaemia [Unknown]
  - Eye pain [Unknown]
  - Vision blurred [Unknown]
  - Eye infection [Unknown]

NARRATIVE: CASE EVENT DATE: 20240826
